FAERS Safety Report 5368303-4 (Version None)
Quarter: 2007Q2

REPORT INFORMATION
  Report Type: 
  Country: None (occurrence: None)
  Receive Date: 20070620
  Receipt Date: 20070607
  Transmission Date: 20071010
  Serious: Yes (Other)
  Sender: FDA-Public Use
  Company Number: CLOF-10554

PATIENT
  Age: 51 Year
  Sex: Female

DRUGS (2)
  1. CLOFARABINE. MFR: GENZYME [Suspect]
     Indication: ACUTE MYELOID LEUKAEMIA
     Dates: start: 20050101, end: 20050101
  2. CLOFARABINE. MFR: GENZYME [Suspect]
     Indication: DISEASE RECURRENCE
     Dates: start: 20050101, end: 20050101

REACTIONS (10)
  - BACTERIA BLOOD IDENTIFIED [None]
  - BLOOD CULTURE POSITIVE [None]
  - CENTRAL LINE INFECTION [None]
  - EMBOLISM INFECTIVE [None]
  - ENTEROCOCCAL INFECTION [None]
  - FUNGAL INFECTION [None]
  - NEUTROPENIA [None]
  - RASH [None]
  - STAPHYLOCOCCAL INFECTION [None]
  - VASCULITIS [None]
